FAERS Safety Report 6674367-8 (Version None)
Quarter: 2010Q2

REPORT INFORMATION
  Report Type: 
  Country: None (occurrence: None)
  Receive Date: 20100409
  Receipt Date: 20100331
  Transmission Date: 20101027
  Serious: Yes (Other)
  Sender: FDA-Public Use
  Company Number: CZ-WYE-H14395410

PATIENT
  Age: 69 Year
  Sex: Female

DRUGS (1)
  1. TEMSIROLIMUS [Suspect]
     Indication: METASTATIC RENAL CELL CARCINOMA
     Route: 042
     Dates: start: 20090501, end: 20090701

REACTIONS (12)
  - ALANINE AMINOTRANSFERASE INCREASED [None]
  - ASPARTATE AMINOTRANSFERASE INCREASED [None]
  - ASTHENIA [None]
  - FATIGUE [None]
  - HYPERGLYCAEMIA [None]
  - HYPERTHYROIDISM [None]
  - MUCOSAL INFLAMMATION [None]
  - NEUROPATHY PERIPHERAL [None]
  - PALMAR-PLANTAR ERYTHRODYSAESTHESIA SYNDROME [None]
  - RASH [None]
  - STOMATITIS [None]
  - THROMBOCYTOPENIA [None]
